FAERS Safety Report 15718897 (Version 1)
Quarter: 2018Q4

REPORT INFORMATION
  Report Type: Spontaneous
  Country: US (occurrence: US)
  Receive Date: 20181213
  Receipt Date: 20181213
  Transmission Date: 20190205
  Serious: Yes (Hospitalization)
  Sender: FDA-Public Use
  Company Number: US-ELI_LILLY_AND_COMPANY-US201812000644

PATIENT
  Sex: Female

DRUGS (5)
  1. BASAGLAR [Interacting]
     Active Substance: INSULIN GLARGINE
     Indication: TYPE 2 DIABETES MELLITUS
  2. HUMALOG [Suspect]
     Active Substance: INSULIN LISPRO
     Indication: PRODUCT USED FOR UNKNOWN INDICATION
  3. CORTISONE [Interacting]
     Active Substance: CORTISONE\HYDROCORTISONE
     Indication: SPONDYLITIS
  4. TRULICITY [Suspect]
     Active Substance: DULAGLUTIDE
     Indication: TYPE 2 DIABETES MELLITUS
     Dosage: UNK, UNKNOWN
     Route: 065
  5. CORTISONE [Interacting]
     Active Substance: CORTISONE\HYDROCORTISONE
     Indication: ARTHRITIS

REACTIONS (5)
  - Arthritis [Recovering/Resolving]
  - Spondylitis [Recovering/Resolving]
  - Nerve compression [Recovering/Resolving]
  - Drug interaction [Unknown]
  - Blood glucose increased [Unknown]
